FAERS Safety Report 16255428 (Version 1)
Quarter: 2019Q2

REPORT INFORMATION
  Report Type: Report from Study
  Country: IE (occurrence: IE)
  Receive Date: 20190430
  Receipt Date: 20190430
  Transmission Date: 20190711
  Serious: Yes (Other)
  Sender: FDA-Public Use
  Company Number: IE-EMD SERONO-9081457

PATIENT
  Age: 50 Year
  Sex: Female

DRUGS (2)
  1. MAVENCLAD [Suspect]
     Active Substance: CLADRIBINE
     Indication: MULTIPLE SCLEROSIS
     Dosage: FIRST WEEK THERAPY: ONE DOSAGE FORM (EACH OF 10 MG) ON DAYS 1 TO 5.
     Route: 048
     Dates: start: 20190225
  2. MAVENCLAD [Suspect]
     Active Substance: CLADRIBINE
     Dosage: SECOND WEEK THERAPY: ONE DOSAGE FORM (EACH OF 10 MG) ON DAYS 1 TO 5.
     Route: 048
     Dates: start: 20190325

REACTIONS (2)
  - Respiratory tract infection [Recovering/Resolving]
  - Headache [Unknown]

NARRATIVE: CASE EVENT DATE: 20190422
